FAERS Safety Report 18777801 (Version 1)
Quarter: 2021Q1

REPORT INFORMATION
  Report Type: Spontaneous
  Country: US (occurrence: US)
  Receive Date: 20210122
  Receipt Date: 20210122
  Transmission Date: 20210419
  Serious: No
  Sender: FDA-Public Use
  Company Number: 2020SGN03383

PATIENT
  Age: 70 Year
  Sex: Female

DRUGS (2)
  1. XELODA [Suspect]
     Active Substance: CAPECITABINE
  2. TUKYSA [Suspect]
     Active Substance: TUCATINIB
     Indication: BREAST CANCER METASTATIC
     Dosage: 300 MG, BID
     Route: 048

REACTIONS (9)
  - Nail discolouration [Unknown]
  - Fatigue [Unknown]
  - Decreased appetite [Unknown]
  - Breast reconstruction [Unknown]
  - Elective surgery [Unknown]
  - Nausea [Unknown]
  - Palmar-plantar erythrodysaesthesia syndrome [Unknown]
  - Rash [Unknown]
  - Diarrhoea [Unknown]

NARRATIVE: CASE EVENT DATE: 20201013
